FAERS Safety Report 15731378 (Version 2)
Quarter: 2018Q4

REPORT INFORMATION
  Report Type: Report from Study
  Country: ES (occurrence: ES)
  Receive Date: 20181217
  Receipt Date: 20181228
  Transmission Date: 20190205
  Serious: Yes (Other)
  Sender: FDA-Public Use
  Company Number: ES-SHIRE-ES201848094

PATIENT

DRUGS (1)
  1. HYQVIA [Suspect]
     Active Substance: HUMAN IMMUNOGLOBULIN G\HYALURONIDASE RECOMBINANT HUMAN
     Indication: PRODUCT USED FOR UNKNOWN INDICATION
     Dosage: 35 G, EVERY 4 WK
     Route: 058

REACTIONS (7)
  - Infusion site pain [Recovered/Resolved]
  - Oral herpes [Unknown]
  - Injection site inflammation [Recovered/Resolved]
  - Injection site erythema [Recovered/Resolved]
  - Intentional product misuse [Unknown]
  - Infusion site discomfort [Recovered/Resolved]
  - Pruritus [Recovered/Resolved]

NARRATIVE: CASE EVENT DATE: 20181207
